FAERS Safety Report 4441631-2 (Version None)
Quarter: 2004Q3

REPORT INFORMATION
  Report Type: 
  Country: None (occurrence: None)
  Receive Date: 20040907
  Receipt Date: 20040825
  Transmission Date: 20050211
  Serious: Yes (Other)
  Sender: FDA-Public Use
  Company Number: 200418433GDDC

PATIENT
  Age: 30 Year
  Sex: Male
  Weight: 69 kg

DRUGS (1)
  1. METRONIDAZOLE [Suspect]
     Indication: TOOTH ABSCESS
     Route: 048
     Dates: start: 20040729, end: 20040731

REACTIONS (1)
  - CHROMATURIA [None]
